FAERS Safety Report 6250666-9 (Version None)
Quarter: 2009Q2

REPORT INFORMATION
  Report Type: 
  Country: None (occurrence: None)
  Receive Date: 20090630
  Receipt Date: 20090618
  Transmission Date: 20091009
  Serious: Yes (Other)
  Sender: FDA-Public Use
  Company Number: JP-ELI_LILLY_AND_COMPANY-JP200904000258

PATIENT
  Age: 81 Year
  Sex: Female
  Weight: 50 kg

DRUGS (7)
  1. EVISTA [Suspect]
     Indication: OSTEOPOROSIS
     Dosage: 60 MG, DAILY (1/D)
     Route: 048
     Dates: start: 20080617, end: 20090201
  2. GABALON [Concomitant]
  3. CEREDIST [Concomitant]
     Route: 048
  4. ITOROL [Concomitant]
     Route: 048
  5. ELPINAN [Concomitant]
     Route: 048
  6. MAIBASTAN [Concomitant]
     Indication: HYPERLIPIDAEMIA
     Route: 048
  7. ALFAROL [Concomitant]
     Route: 048

REACTIONS (1)
  - DEEP VEIN THROMBOSIS [None]
